FAERS Safety Report 18453167 (Version 1)
Quarter: 2020Q4

REPORT INFORMATION
  Report Type: Report from Study
  Country: FR (occurrence: FR)
  Receive Date: 20201102
  Receipt Date: 20201102
  Transmission Date: 20210114
  Serious: Yes (Other)
  Sender: FDA-Public Use
  Company Number: FR-PFIZER INC-2020398846

PATIENT

DRUGS (4)
  1. ALPRAZOLAM. [Interacting]
     Active Substance: ALPRAZOLAM
     Dosage: UNK
  2. METHYLPREDNISOLONE. [Suspect]
     Active Substance: METHYLPREDNISOLONE
     Dosage: UNK
  3. FUROSEMIDE. [Interacting]
     Active Substance: FUROSEMIDE
     Dosage: UNK
  4. APREPITANT. [Interacting]
     Active Substance: APREPITANT
     Dosage: UNK

REACTIONS (2)
  - Hypokalaemia [Unknown]
  - Drug interaction [Unknown]
